FAERS Safety Report 23322758 (Version 1)
Quarter: 2023Q4

REPORT INFORMATION
  Report Type: Report from Study
  Country: US (occurrence: US)
  Receive Date: 20231220
  Receipt Date: 20231220
  Transmission Date: 20240110
  Serious: Yes (Other)
  Sender: FDA-Public Use
  Company Number: US-AMX-002531

PATIENT
  Age: 55 Year
  Sex: Male

DRUGS (1)
  1. RELYVRIO [Suspect]
     Active Substance: SODIUM PHENYLBUTYRATE\TAURURSODIOL
     Indication: Amyotrophic lateral sclerosis
     Dosage: 1 SACHET ONCE DAILY FOR FIRST 3 WEEKS THEN ONE SACHET TWICE DAILY
     Route: 048
     Dates: start: 20230410

REACTIONS (7)
  - Neoplasm malignant [Unknown]
  - Hepatic cancer [Unknown]
  - Vomiting [Unknown]
  - Pancreatic carcinoma stage IV [Unknown]
  - Oropharyngeal pain [Unknown]
  - Headache [Unknown]
  - Dizziness [Unknown]

NARRATIVE: CASE EVENT DATE: 20230410
